FAERS Safety Report 9860790 (Version 1)
Quarter: 2014Q1

REPORT INFORMATION
  Report Type: Spontaneous
  Country: FR (occurrence: FR)
  Receive Date: 20140202
  Receipt Date: 20140202
  Transmission Date: 20141002
  Serious: No
  Sender: FDA-Public Use
  Company Number: FR-ALLERGAN-1301398US

PATIENT
  Age: 59 Year
  Sex: Female

DRUGS (4)
  1. VISTABEL [Suspect]
     Indication: SKIN WRINKLING
     Dosage: UNK, SINGLE
     Route: 030
     Dates: start: 20121123, end: 20121123
  2. VISTABEL [Suspect]
     Indication: SKIN WRINKLING
  3. VISTABEL [Suspect]
     Indication: SKIN WRINKLING
  4. EMLA CREAM [Concomitant]
     Indication: PRODUCT USED FOR UNKNOWN INDICATION

REACTIONS (1)
  - Papule [Not Recovered/Not Resolved]
